FAERS Safety Report 19180684 (Version 2)
Quarter: 2021Q2

REPORT INFORMATION
  Report Type: Report from Study
  Country: NL (occurrence: NL)
  Receive Date: 20210426
  Receipt Date: 20210525
  Transmission Date: 20210717
  Serious: Yes (Disabling, Other)
  Sender: FDA-Public Use
  Company Number: NL-ASTELLAS-2021US014579

PATIENT
  Age: 58 Year
  Sex: Male
  Weight: 101 kg

DRUGS (6)
  1. PREDNISOLON [Concomitant]
     Active Substance: PREDNISOLONE
     Indication: IMMUNOSUPPRESSION
     Dosage: 10 UNK, TOTAL DAILY DOSE
     Route: 065
     Dates: start: 20170814, end: 20170825
  2. PREDNISOLON [Concomitant]
     Active Substance: PREDNISOLONE
     Dosage: 5 UNK, TOTAL DAILY DOSE
     Route: 065
     Dates: start: 20180313, end: 20190625
  3. TACROLIMUS. [Suspect]
     Active Substance: TACROLIMUS
     Indication: IMMUNOSUPPRESSION
     Route: 048
     Dates: start: 20170811, end: 20200824
  4. PREDNISOLON [Concomitant]
     Active Substance: PREDNISOLONE
     Dosage: 7.5 UNK, TOTAL DAILY DOSE
     Route: 065
     Dates: start: 20170825, end: 20180313
  5. PREDNISOLON [Concomitant]
     Active Substance: PREDNISOLONE
     Dosage: 10 UNK, TOTAL DAILY DOSE
     Route: 065
     Dates: start: 20190625
  6. MYCOPHENOLIC ACID. [Concomitant]
     Active Substance: MYCOPHENOLIC ACID
     Indication: IMMUNOSUPPRESSION
     Dosage: 1000 UNK, TOTAL DAILY DOSE
     Route: 065
     Dates: start: 20160323

REACTIONS (1)
  - Angioedema [Not Recovered/Not Resolved]

NARRATIVE: CASE EVENT DATE: 201909
